FAERS Safety Report 7314036-4 (Version None)
Quarter: 2011Q1

REPORT INFORMATION
  Report Type: 
  Country: None (occurrence: None)
  Receive Date: 20110215
  Receipt Date: 20110124
  Transmission Date: 20110831
  Serious: Yes (Other)
  Sender: FDA-Public Use
  Company Number: 2011020013

PATIENT
  Sex: Female
  Weight: 64.4108 kg

DRUGS (7)
  1. SOMA [Suspect]
     Indication: MUSCLE RELAXANT THERAPY
     Dosage: (2 IN 1 D), ORAL
     Route: 048
  2. LYRICA [Suspect]
     Indication: FIBROMYALGIA
     Dosage: 100 MG (50 MG, 2 IN 1 D), ORAL; (75 MG, Q MORNING), ORAL; (150 MG, NIGHTLY), ORAL
     Route: 048
     Dates: end: 20100901
  3. LYRICA [Suspect]
     Indication: FIBROMYALGIA
     Dosage: 100 MG (50 MG, 2 IN 1 D), ORAL; (75 MG, Q MORNING), ORAL; (150 MG, NIGHTLY), ORAL
     Route: 048
     Dates: end: 20100901
  4. LYRICA [Suspect]
     Indication: FIBROMYALGIA
     Dosage: 100 MG (50 MG, 2 IN 1 D), ORAL; (75 MG, Q MORNING), ORAL; (150 MG, NIGHTLY), ORAL
     Route: 048
     Dates: start: 20090101
  5. STOOL SOFTENER [Concomitant]
  6. ZOCOR [Concomitant]
  7. LEVOTHYROXINE SODIUM [Concomitant]

REACTIONS (14)
  - MUSCULOSKELETAL STIFFNESS [None]
  - VISUAL IMPAIRMENT [None]
  - SOMNOLENCE [None]
  - DISCOMFORT [None]
  - OEDEMA PERIPHERAL [None]
  - HEAD INJURY [None]
  - FACIAL BONES FRACTURE [None]
  - VISUAL ACUITY REDUCED [None]
  - PANIC ATTACK [None]
  - FALL [None]
  - ASTHENIA [None]
  - MUSCLE SPASMS [None]
  - SUDDEN ONSET OF SLEEP [None]
  - RESTLESSNESS [None]
